FAERS Safety Report 6919845-9 (Version None)
Quarter: 2010Q3

REPORT INFORMATION
  Report Type: 
  Country: None (occurrence: None)
  Receive Date: 20100810
  Receipt Date: 20100810
  Transmission Date: 20110219
  Serious: Yes (Hospitalization)
  Sender: FDA-Public Use
  Company Number: None

PATIENT
  Sex: Female
  Weight: 60.6 kg

DRUGS (5)
  1. CYCLOPHOSPHAMIDE [Suspect]
     Dosage: 1290 MG
  2. DOXORUBICIN HYDROCHLORIDE [Suspect]
     Dosage: 86 MG
  3. PREDNISONE [Suspect]
     Dosage: 350 MG
  4. RITUXIMAB (MOAB C2B8 ANTI CD20, CHIMERIC) [Suspect]
     Dosage: 645 MG
  5. VINCRISTINE SULFATE [Suspect]
     Dosage: 2 MG

REACTIONS (14)
  - ATELECTASIS [None]
  - CARDIOMYOPATHY [None]
  - CEREBRAL INFARCTION [None]
  - DYSPNOEA [None]
  - EMBOLIC STROKE [None]
  - HYPOTENSION [None]
  - HYPOXIA [None]
  - LUNG INFILTRATION [None]
  - RESPIRATORY RATE DECREASED [None]
  - SEPSIS [None]
  - SIMPLEX VIRUS TEST POSITIVE [None]
  - SINUS TACHYCARDIA [None]
  - SPUTUM CULTURE POSITIVE [None]
  - UNRESPONSIVE TO STIMULI [None]
